FAERS Safety Report 11921382 (Version 1)
Quarter: 2016Q1

REPORT INFORMATION
  Report Type: Spontaneous
  Country: US (occurrence: US)
  Receive Date: 20160115
  Receipt Date: 20160115
  Transmission Date: 20160526
  Serious: No
  Sender: FDA-Public Use
  Company Number: US-ALK ABELLO INC-1046535

PATIENT
  Age: 30 Year
  Sex: Female

DRUGS (1)
  1. VARIOUS UNSPECIFIED ALK ALLERGEN EXTRACTS [Suspect]
     Active Substance: ALLERGENIC EXTRACTS
     Route: 060

REACTIONS (2)
  - No adverse event [None]
  - Off label use [None]
